FAERS Safety Report 7054035-3 (Version None)
Quarter: 2010Q4

REPORT INFORMATION
  Report Type: 
  Country: None (occurrence: None)
  Receive Date: 20101014
  Receipt Date: 20101004
  Transmission Date: 20110411
  Serious: Yes (Hospitalization)
  Sender: FDA-Public Use
  Company Number: 2010S1000693

PATIENT
  Age: 65 Year
  Sex: Male
  Weight: 46 kg

DRUGS (7)
  1. LIVALO KOWA (PITAVASTATIN) [Suspect]
     Indication: HYPERCHOLESTEROLAEMIA
     Dosage: 1 MG;1X;PO
     Route: 048
     Dates: start: 20050228, end: 20090817
  2. EPADEL-S [Concomitant]
  3. BASEN [Concomitant]
  4. AMARYL [Concomitant]
  5. METFORMIN HCL [Concomitant]
  6. ACTOS [Concomitant]
  7. PLAVIX [Concomitant]

REACTIONS (5)
  - BLOOD CREATINE PHOSPHOKINASE INCREASED [None]
  - BLOOD URINE PRESENT [None]
  - DIZZINESS [None]
  - FALL [None]
  - PYREXIA [None]
